FAERS Safety Report 9783765 (Version 2)
Quarter: 2014Q1

REPORT INFORMATION
  Report Type: Spontaneous
  Country: US (occurrence: US)
  Receive Date: 20131226
  Receipt Date: 20140210
  Transmission Date: 20141002
  Serious: No
  Sender: FDA-Public Use
  Company Number: US-PFIZER INC-2013369232

PATIENT
  Age: 52 Year
  Sex: Female
  Weight: 74.83 kg

DRUGS (1)
  1. LYRICA [Suspect]
     Indication: FIBROMYALGIA
     Dosage: 500 MG, DAILY (AT NIGHT)
     Dates: end: 201312

REACTIONS (2)
  - Drug withdrawal syndrome [Unknown]
  - Memory impairment [Recovering/Resolving]
